FAERS Safety Report 16002842 (Version 1)
Quarter: 2019Q1

REPORT INFORMATION
  Report Type: Spontaneous
  Country: US (occurrence: US)
  Receive Date: 20190225
  Receipt Date: 20190225
  Transmission Date: 20190418
  Serious: No
  Sender: FDA-Public Use
  Company Number: US-SA-2019SA046786

PATIENT
  Sex: Male

DRUGS (1)
  1. ALLEGRA-D [Suspect]
     Active Substance: FEXOFENADINE\PSEUDOEPHEDRINE

REACTIONS (3)
  - Drug effect decreased [Unknown]
  - Erythema [Not Recovered/Not Resolved]
  - Pruritus [Recovering/Resolving]
